FAERS Safety Report 14842994 (Version 1)
Quarter: 2018Q2

REPORT INFORMATION
  Report Type: Spontaneous
  Country: JP (occurrence: JP)
  Receive Date: 20180503
  Receipt Date: 20180503
  Transmission Date: 20180711
  Serious: Yes (Other)
  Sender: FDA-Public Use
  Company Number: JP-NAPPMUNDI-GBR-2018-0055358

PATIENT
  Age: 71 Year
  Sex: Male

DRUGS (3)
  1. LOXONIN [Concomitant]
     Active Substance: LOXOPROFEN SODIUM
     Indication: ABDOMINAL PAIN
  2. PROCHLORPERAZINE MALEATE. [Concomitant]
     Active Substance: PROCHLORPERAZINE MALEATE
  3. OXYCONTIN [Suspect]
     Active Substance: OXYCODONE HYDROCHLORIDE
     Indication: ABDOMINAL PAIN
     Dosage: UNK
     Route: 065

REACTIONS (6)
  - Delirium [Unknown]
  - Akathisia [Not Recovered/Not Resolved]
  - Ascites [Unknown]
  - Pyrexia [Unknown]
  - Off label use [Unknown]
  - Insomnia [Unknown]
